FAERS Safety Report 6704029-X (Version None)
Quarter: 2010Q2

REPORT INFORMATION
  Report Type: 
  Country: None (occurrence: None)
  Receive Date: 20100430
  Receipt Date: 20100426
  Transmission Date: 20101027
  Serious: Yes (Hospitalization, Other)
  Sender: FDA-Public Use
  Company Number: US-B.I. PHARMACEUTICALS,INC./RIDGEFIELD-2010-BP-04444BP

PATIENT
  Sex: Male

DRUGS (1)
  1. SPIRIVA [Suspect]
     Indication: CHRONIC OBSTRUCTIVE PULMONARY DISEASE
     Route: 055

REACTIONS (2)
  - HAEMOPTYSIS [None]
  - LUNG NEOPLASM MALIGNANT [None]
